FAERS Safety Report 6280627-5 (Version None)
Quarter: 2009Q3

REPORT INFORMATION
  Report Type: 
  Country: None (occurrence: None)
  Receive Date: 20090724
  Receipt Date: 20081014
  Transmission Date: 20100115
  Serious: No
  Sender: FDA-Public Use
  Company Number: A0752890A

PATIENT
  Sex: Male

DRUGS (3)
  1. AVANDIA [Suspect]
     Dosage: 4MG TWICE PER DAY
     Route: 048
  2. GLYBURIDE [Suspect]
     Dosage: 500MG FOUR TIMES PER DAY
     Route: 048
  3. METFORMIN HCL [Suspect]
     Route: 048

REACTIONS (3)
  - ASTHENIA [None]
  - BLOOD GLUCOSE FLUCTUATION [None]
  - MALAISE [None]
